FAERS Safety Report 8373321-8 (Version None)
Quarter: 2012Q2

REPORT INFORMATION
  Report Type: 
  Country: None (occurrence: None)
  Receive Date: 20120521
  Receipt Date: 20110511
  Transmission Date: 20120825
  Serious: Yes (Hospitalization)
  Sender: FDA-Public Use
  Company Number: US-TEVA-2011002318

PATIENT
  Age: 71 Year
  Sex: Male
  Weight: 86 kg

DRUGS (6)
  1. RITUXIMAB [Suspect]
  2. PREDNISONE [Suspect]
  3. LEVAQUIN [Concomitant]
  4. ALLOPURINOL [Suspect]
  5. AMOXICILLIN [Concomitant]
  6. TREANDA [Suspect]
     Indication: LYMPHOMA
     Route: 042
     Dates: start: 20110429

REACTIONS (1)
  - RASH [None]
